FAERS Safety Report 10762480 (Version 2)
Quarter: 2015Q1

REPORT INFORMATION
  Report Type: Spontaneous
  Country: US (occurrence: US)
  Receive Date: 20150204
  Receipt Date: 20150204
  Transmission Date: 20150721
  Serious: Yes (Other)
  Sender: FDA-Public Use
  Company Number: PHHY2015US010637

PATIENT
  Age: 53 Year
  Sex: Female

DRUGS (8)
  1. PHENYTOIN. [Suspect]
     Active Substance: PHENYTOIN
     Indication: TEMPORAL LOBE EPILEPSY
     Route: 065
  2. VALPROIC ACID. [Suspect]
     Active Substance: VALPROIC ACID
     Indication: TEMPORAL LOBE EPILEPSY
     Route: 065
  3. LACOSAMIDE [Suspect]
     Active Substance: LACOSAMIDE
     Indication: TEMPORAL LOBE EPILEPSY
     Dosage: 200 MG, BID
     Route: 065
  4. OXCARBAZEPINE. [Suspect]
     Active Substance: OXCARBAZEPINE
     Indication: TEMPORAL LOBE EPILEPSY
     Route: 065
  5. ZONISAMIDE. [Suspect]
     Active Substance: ZONISAMIDE
     Indication: TEMPORAL LOBE EPILEPSY
     Route: 065
  6. CARBAMAZEPINE. [Suspect]
     Active Substance: CARBAMAZEPINE
     Indication: TEMPORAL LOBE EPILEPSY
     Dosage: 200 MG, QD
     Route: 065
  7. ETHOSUXIMIDE. [Suspect]
     Active Substance: ETHOSUXIMIDE
     Indication: TEMPORAL LOBE EPILEPSY
     Route: 065
  8. PRIMIDONE. [Suspect]
     Active Substance: PRIMIDONE
     Indication: TEMPORAL LOBE EPILEPSY
     Dosage: 250 MG, BID
     Route: 065

REACTIONS (7)
  - Unresponsive to stimuli [Unknown]
  - Drug ineffective [Unknown]
  - Movement disorder [Unknown]
  - Petit mal epilepsy [Recovered/Resolved]
  - Automatism epileptic [Unknown]
  - Wrong drug administered [Unknown]
  - Seizure [Recovered/Resolved]
